FAERS Safety Report 23051796 (Version 1)
Quarter: 2023Q4

REPORT INFORMATION
  Report Type: Spontaneous
  Country: US (occurrence: US)
  Receive Date: 20231010
  Receipt Date: 20231010
  Transmission Date: 20240110
  Serious: No
  Sender: FDA-Public Use
  Company Number: US-Sprout Pharmaceuticals, Inc.-2023SP000066

PATIENT
  Age: 40 Year
  Sex: Female
  Weight: 61.29 kg

DRUGS (1)
  1. ADDYI [Suspect]
     Active Substance: FLIBANSERIN
     Indication: Libido decreased
     Dosage: SKIPPED DOSES ON 17-FEB-2023 AND 18-FEB-2023
     Route: 048
     Dates: start: 20230215, end: 20230220

REACTIONS (8)
  - Dyspnoea [Recovered/Resolved]
  - Restlessness [Recovered/Resolved]
  - Abdominal discomfort [Recovered/Resolved]
  - Product use in unapproved indication [Recovered/Resolved]
  - Intentional dose omission [Recovered/Resolved]
  - Insomnia [Recovered/Resolved]
  - Nausea [Recovered/Resolved]
  - Drug ineffective [Recovered/Resolved]

NARRATIVE: CASE EVENT DATE: 20230215
